FAERS Safety Report 8890353 (Version 1)
Quarter: 2012Q4

REPORT INFORMATION
  Report Type: 
  Country: NL (occurrence: NL)
  Receive Date: 20121107
  Receipt Date: 20121107
  Transmission Date: 20130627
  Serious: Yes (Other)
  Sender: FDA-Public Use
  Company Number: NL-AMGEN-NLDSP2012070989

PATIENT
  Age: 58 Year
  Sex: Female

DRUGS (5)
  1. ENBREL [Suspect]
     Indication: ANKYLOSING SPONDYLITIS
     Dosage: 50 mg, weekly
     Dates: start: 2009
  2. CRESTOR [Concomitant]
     Dosage: UNK UNK, UNK
  3. HYDROCHLOROTHIAZIDE [Concomitant]
     Dosage: UNK UNK, UNK
  4. LASIX                              /00032601/ [Concomitant]
     Dosage: UNK UNK, UNK
  5. INSULIN [Concomitant]
     Dosage: UNK UNK, UNK

REACTIONS (1)
  - Lung infection [Recovered/Resolved]
